FAERS Safety Report 13015751 (Version 1)
Quarter: 2016Q4

REPORT INFORMATION
  Report Type: Spontaneous
  Country: DK (occurrence: None)
  Receive Date: 20161208
  Receipt Date: 20161208
  Transmission Date: 20170207
  Serious: Yes (Disabling)
  Sender: FDA-Public Use
  Company Number: DK2016K7809SPO

PATIENT
  Age: 34 Year
  Sex: Female

DRUGS (6)
  1. ENALAPRIL KRKA (ENALAPRIL) TABLET (LOT# HAVES IKKE) [Suspect]
     Active Substance: ENALAPRIL
     Indication: HYPERTENSION
     Dosage: ENALAPRIL - 2,5 MG 1 TBL X 2, ONGOING TILL 10 MG X 2, STYRKE: 2,5 MG, ONGOING TIL 10 MG; ORAL
     Route: 048
     Dates: start: 20070628
  2. MAREVAN (WARFARINNATRIUM) [Suspect]
     Active Substance: WARFARIN SODIUM
  3. MAGNYL SVAGE DAK (ACETYLSALICYLSYRE) [Concomitant]
  4. SIMVASTATIN ACTAVIS (SIMVASTATIN) [Concomitant]
  5. PLAVIX (CLOPIDOGRELHYDROGENSULFAT) [Concomitant]
  6. SELO-ZOK (METOPROLOLSUCCINAT) [Concomitant]

REACTIONS (3)
  - Chest pain [None]
  - Anxiety [None]
  - Depression [None]

NARRATIVE: CASE EVENT DATE: 20070712
